FAERS Safety Report 6000152-6 (Version None)
Quarter: 2008Q4

REPORT INFORMATION
  Report Type: 
  Country: None (occurrence: None)
  Receive Date: 20081215
  Receipt Date: 20081205
  Transmission Date: 20090506
  Serious: Yes (Life-Threatening, Hospitalization, Other)
  Sender: FDA-Public Use
  Company Number: ES-ABBOTT-08P-144-0491554-00

PATIENT
  Age: 30 Year
  Sex: Male

DRUGS (1)
  1. HUMIRA [Suspect]
     Indication: CROHN'S DISEASE
     Route: 058
     Dates: start: 20080601, end: 20081201

REACTIONS (6)
  - ANAEMIA [None]
  - ASTHENIA [None]
  - CARDIAC TAMPONADE [None]
  - LEUKOPENIA [None]
  - MACROCYTOSIS [None]
  - PERICARDITIS TUBERCULOUS [None]
